FAERS Safety Report 7769093-8 (Version None)
Quarter: 2011Q3

REPORT INFORMATION
  Report Type: 
  Country: None (occurrence: None)
  Receive Date: 20110922
  Receipt Date: 20100723
  Transmission Date: 20111222
  Serious: No
  Sender: FDA-Public Use
  Company Number: US-ASTRAZENECA-2009UW21586

PATIENT
  Age: 34 Year
  Sex: Female
  Weight: 127 kg

DRUGS (15)
  1. LAMICTAL [Concomitant]
     Dates: start: 20060203
  2. SEROQUEL [Suspect]
     Route: 048
     Dates: start: 20071009
  3. ZYPREXA [Concomitant]
     Indication: SCHIZOPHRENIA
     Dates: start: 20030101, end: 20030101
  4. GEODON [Concomitant]
     Dates: start: 20031124
  5. HALDOL [Concomitant]
  6. THORAZINE [Concomitant]
     Dosage: 1 TAB PO BID 3 QHS
     Dates: start: 20071009
  7. LORAZEPAM [Concomitant]
     Dates: start: 20030331
  8. ABILIFY [Concomitant]
     Dates: start: 20030824
  9. TOPAMAX [Concomitant]
     Dates: start: 20071009
  10. RISPERDAL [Concomitant]
     Indication: SCHIZOPHRENIA
     Dates: start: 20030101, end: 20030101
  11. FLUOXETINE [Concomitant]
     Dates: start: 20071009
  12. SEROQUEL [Suspect]
     Indication: SCHIZOPHRENIA
     Dosage: 100-300 MG
     Route: 048
     Dates: start: 20031121
  13. CYMBALTA [Concomitant]
     Dates: start: 20060122
  14. ROZEREM [Concomitant]
     Dates: start: 20071009
  15. ARTANE [Concomitant]
     Dates: start: 20071009

REACTIONS (2)
  - TYPE 2 DIABETES MELLITUS [None]
  - OBESITY [None]
